FAERS Safety Report 15696697 (Version 4)
Quarter: 2019Q1

REPORT INFORMATION
  Report Type: Report from Study
  Country: US (occurrence: US)
  Receive Date: 20181206
  Receipt Date: 20190328
  Transmission Date: 20190417
  Serious: Yes (Death, Hospitalization, Other)
  Sender: FDA-Public Use
  Company Number: US-TAKEDA-2018TUS034596

PATIENT
  Sex: Male

DRUGS (1)
  1. PONATINIB [Suspect]
     Active Substance: PONATINIB
     Indication: ACUTE LYMPHOCYTIC LEUKAEMIA (IN REMISSION)
     Dosage: 30 MILLIGRAM, QD
     Route: 048
     Dates: start: 201808

REACTIONS (14)
  - Red blood cell count decreased [Unknown]
  - Abdominal pain [Unknown]
  - Death [Fatal]
  - Leukaemia recurrent [Unknown]
  - Circulatory collapse [Unknown]
  - Unresponsive to stimuli [Unknown]
  - Asthenia [Unknown]
  - Dysphagia [Unknown]
  - Hypotension [Unknown]
  - Sepsis [Unknown]
  - Leukopenia [Unknown]
  - Dyspnoea [Unknown]
  - Laboratory test abnormal [Unknown]
  - Dehydration [Unknown]
